FAERS Safety Report 4612705-8 (Version None)
Quarter: 2005Q1

REPORT INFORMATION
  Report Type: 
  Country: None (occurrence: None)
  Receive Date: 20050318
  Receipt Date: 20050304
  Transmission Date: 20050727
  Serious: Yes (Other)
  Sender: FDA-Public Use
  Company Number: GB-KINGPHARMUSA00001-K200500359

PATIENT

DRUGS (1)
  1. SEPTRA [Suspect]
     Indication: PROPHYLAXIS
     Dosage: 240 MG/480 MG, QD

REACTIONS (1)
  - ANAEMIA [None]
